FAERS Safety Report 7502123-7 (Version None)
Quarter: 2011Q2

REPORT INFORMATION
  Report Type: 
  Country: None (occurrence: None)
  Receive Date: 20110523
  Receipt Date: 20110523
  Transmission Date: 20111010
  Serious: Yes (Life-Threatening, Disabling, Other)
  Sender: FDA-Public Use
  Company Number: None

PATIENT
  Age: 13 Year
  Sex: Female
  Weight: 46.7205 kg

DRUGS (1)
  1. SINGULAIR [Suspect]
     Indication: ASTHMA
     Dosage: ONCE DAILY
     Dates: start: 20100914, end: 20110410

REACTIONS (4)
  - INTENTIONAL SELF-INJURY [None]
  - DEPRESSION [None]
  - AGGRESSION [None]
  - SUICIDAL IDEATION [None]
